FAERS Safety Report 6940790-7 (Version None)
Quarter: 2010Q3

REPORT INFORMATION
  Report Type: 
  Country: None (occurrence: None)
  Receive Date: 20100825
  Receipt Date: 20100816
  Transmission Date: 20110219
  Serious: Yes (Other)
  Sender: FDA-Public Use
  Company Number: US-JNJFOC-20100805494

PATIENT
  Sex: Male

DRUGS (3)
  1. CHILDREN'S MOTRIN [Suspect]
  2. CHILDREN'S MOTRIN [Suspect]
     Indication: PRODUCT USED FOR UNKNOWN INDICATION
  3. BENADRYL [Suspect]
     Indication: PRODUCT USED FOR UNKNOWN INDICATION

REACTIONS (15)
  - ABASIA [None]
  - ARTHRALGIA [None]
  - ASTHENIA [None]
  - FACE OEDEMA [None]
  - FATIGUE [None]
  - HYPERSENSITIVITY [None]
  - MALAISE [None]
  - NAUSEA [None]
  - OEDEMA PERIPHERAL [None]
  - PRODUCT QUALITY ISSUE [None]
  - PYREXIA [None]
  - RELAPSING FEVER [None]
  - RESTLESSNESS [None]
  - URTICARIA [None]
  - VOMITING [None]
